FAERS Safety Report 7088565-5 (Version None)
Quarter: 2010Q4

REPORT INFORMATION
  Report Type: 
  Country: None (occurrence: None)
  Receive Date: 20101108
  Receipt Date: 20101105
  Transmission Date: 20110411
  Serious: Yes (Other)
  Sender: FDA-Public Use
  Company Number: JP-SANOFI-AVENTIS-2010SA050890

PATIENT
  Age: 64 Year
  Sex: Female
  Weight: 53 kg

DRUGS (17)
  1. CLEXANE [Suspect]
     Route: 058
     Dates: start: 20090822, end: 20090822
  2. CLEXANE [Suspect]
     Indication: PROPHYLAXIS
     Route: 058
     Dates: start: 20090822, end: 20090822
  3. CLEXANE [Suspect]
     Route: 058
     Dates: start: 20090823, end: 20090823
  4. CLEXANE [Suspect]
     Route: 058
     Dates: start: 20090823, end: 20090823
  5. CLEXANE [Suspect]
     Route: 058
     Dates: start: 20090824, end: 20090824
  6. CLEXANE [Suspect]
     Route: 058
     Dates: start: 20090824, end: 20090824
  7. URSO 250 [Concomitant]
     Route: 048
  8. MERCAZOLE [Concomitant]
     Route: 048
  9. GASTER D [Concomitant]
     Route: 048
  10. MEVALOTIN [Concomitant]
     Route: 048
  11. FERROUS CITRATE [Concomitant]
     Route: 048
  12. ALENDRONATE SODIUM [Concomitant]
     Route: 048
  13. DIOVAN [Concomitant]
     Route: 048
  14. CONIEL [Concomitant]
     Route: 048
  15. SEVOFLURANE [Concomitant]
     Indication: GENERAL ANAESTHESIA
     Dates: start: 20090821, end: 20090821
  16. ULTIVA [Concomitant]
     Dates: start: 20090821, end: 20090821
  17. PROPOFOL [Concomitant]
     Dates: start: 20090821, end: 20090821

REACTIONS (1)
  - HAEMORRHAGIC ANAEMIA [None]
